FAERS Safety Report 16337144 (Version 3)
Quarter: 2019Q2

REPORT INFORMATION
  Report Type: Spontaneous
  Country: US (occurrence: US)
  Receive Date: 20190521
  Receipt Date: 20190619
  Transmission Date: 20190711
  Serious: No
  Sender: FDA-Public Use
  Company Number: US-PFIZER INC-2019211669

PATIENT
  Sex: Male
  Weight: 106.59 kg

DRUGS (1)
  1. SULFASALAZINE. [Suspect]
     Active Substance: SULFASALAZINE
     Indication: RHEUMATOID ARTHRITIS
     Dosage: 1000 MG, 2X/DAY (500MG, 2 TABLETS 2X/DAY)
     Route: 048
     Dates: start: 201901

REACTIONS (3)
  - Product container seal issue [Unknown]
  - Poor quality product administered [Unknown]
  - Drug ineffective [Unknown]
